FAERS Safety Report 15990162 (Version 3)
Quarter: 2019Q1

REPORT INFORMATION
  Report Type: Spontaneous
  Country: GB (occurrence: GB)
  Receive Date: 20190221
  Receipt Date: 20190306
  Transmission Date: 20190418
  Serious: Yes (Life-Threatening, Hospitalization, Other)
  Sender: FDA-Public Use
  Company Number: GB-UCBSA-2019005509

PATIENT
  Age: 31 Year
  Sex: Female

DRUGS (8)
  1. LAMOTRIGINE. [Concomitant]
     Active Substance: LAMOTRIGINE
     Dosage: 325 MG/DAY
     Dates: start: 201505, end: 201507
  2. LAMOTRIGINE. [Concomitant]
     Active Substance: LAMOTRIGINE
     Dosage: 400 MG/DAY
     Dates: start: 201507, end: 201604
  3. LEVETIRACETAM. [Suspect]
     Active Substance: LEVETIRACETAM
     Dosage: 150 MG,
  4. LAMOTRIGINE. [Concomitant]
     Active Substance: LAMOTRIGINE
     Indication: FRONTAL LOBE EPILEPSY
     Dosage: UNK
     Dates: start: 200101
  5. LAMOTRIGINE. [Concomitant]
     Active Substance: LAMOTRIGINE
     Dosage: 300 MG/DAY
     Dates: start: 2010
  6. LAMOTRIGINE. [Concomitant]
     Active Substance: LAMOTRIGINE
     Dosage: 350 MG/DAY
     Dates: start: 2014, end: 201505
  7. LEVETIRACETAM. [Suspect]
     Active Substance: LEVETIRACETAM
     Indication: FRONTAL LOBE EPILEPSY
     Dosage: UNKNOWN DOSE
     Dates: start: 201512
  8. LEVETIRACETAM. [Suspect]
     Active Substance: LEVETIRACETAM
     Dosage: 750 MG, 2X/DAY (BID)
     Dates: end: 20160428

REACTIONS (2)
  - Ventricular fibrillation [Recovered/Resolved]
  - Electrocardiogram QT prolonged [Recovered/Resolved]

NARRATIVE: CASE EVENT DATE: 20160428
